FAERS Safety Report 14544776 (Version 2)
Quarter: 2018Q1

REPORT INFORMATION
  Report Type: Spontaneous
  Country: NL (occurrence: NL)
  Receive Date: 20180217
  Receipt Date: 20180221
  Transmission Date: 20180509
  Serious: Yes (Other)
  Sender: FDA-Public Use
  Company Number: NL-AUROBINDO-AUR-APL-2018-007922

PATIENT
  Age: 75 Year
  Sex: Female
  Weight: 56 kg

DRUGS (1)
  1. AMOXICILLIN. [Suspect]
     Active Substance: AMOXICILLIN
     Indication: PEPTOSTREPTOCOCCUS INFECTION
     Dosage: 8 G, ONCE A DAY
     Route: 041

REACTIONS (3)
  - Crystalluria [Recovered/Resolved]
  - Acute kidney injury [Recovered/Resolved]
  - Haematuria [Recovered/Resolved]
